FAERS Safety Report 21801019 (Version 2)
Quarter: 2023Q1

REPORT INFORMATION
  Report Type: Report from Study
  Country: AU (occurrence: AU)
  Receive Date: 20221230
  Receipt Date: 20230106
  Transmission Date: 20230417
  Serious: Yes (Hospitalization, Other)
  Sender: FDA-Public Use
  Company Number: AU-PFIZER INC-PV202200130002

PATIENT
  Age: 74 Year
  Sex: Male
  Weight: 61.1 kg

DRUGS (19)
  1. TALAZOPARIB [Suspect]
     Active Substance: TALAZOPARIB
     Indication: Prostate cancer metastatic
     Dosage: 0.5 MG
     Dates: start: 20221212, end: 20221222
  2. PIDNARULEX [Suspect]
     Active Substance: PIDNARULEX
     Indication: Prostate cancer metastatic
     Dosage: 336 MG
     Dates: start: 20221212, end: 20221212
  3. ATORVASTATIN [Concomitant]
     Active Substance: ATORVASTATIN
     Indication: Blood cholesterol
     Dosage: 20 MG, DAILY
     Route: 048
     Dates: start: 20210819
  4. DABIGATRAN [Concomitant]
     Active Substance: DABIGATRAN
     Indication: Atrial fibrillation
     Dosage: 110 MG, 2X/DAY
     Route: 048
     Dates: start: 20210708
  5. FUROSEMIDE [Concomitant]
     Active Substance: FUROSEMIDE
     Indication: Atrial fibrillation
     Dosage: 40 MG, DAILY
     Route: 048
     Dates: start: 20210819
  6. METOPROLOL [Concomitant]
     Active Substance: METOPROLOL
     Indication: Atrial fibrillation
     Dosage: 50 MG, 2X/DAY
     Route: 048
     Dates: start: 20220519
  7. PERINDOPRIL ARGININE [Concomitant]
     Active Substance: PERINDOPRIL ARGININE
     Indication: Atrial fibrillation
     Dosage: 5 MG, DAILY
     Route: 048
     Dates: start: 20210819
  8. ACLIDINIUM BROMIDE [Concomitant]
     Active Substance: ACLIDINIUM BROMIDE
     Indication: Chronic obstructive pulmonary disease
     Dosage: 322 MG, 2X/DAY
     Route: 055
     Dates: start: 201808
  9. ELIGARD [Concomitant]
     Active Substance: LEUPROLIDE ACETATE
     Indication: Prostate cancer
     Dosage: 45 MG 6 MONTHLY
     Route: 058
     Dates: start: 201209
  10. DENOSUMAB [Concomitant]
     Active Substance: DENOSUMAB
     Indication: Osteoporosis
     Dosage: 60 MG 6 MONTHLY
     Route: 058
     Dates: start: 201809
  11. SERETIDE [Concomitant]
     Active Substance: FLUTICASONE PROPIONATE\SALMETEROL XINAFOATE
     Indication: Chronic obstructive pulmonary disease
     Dosage: FLUTICASONE 250MCG/SALMETEROL 50MCG TWICE DAILY
     Route: 055
     Dates: start: 201808
  12. PANTOPRAZOLE [Concomitant]
     Active Substance: PANTOPRAZOLE
     Indication: Gastrooesophageal reflux disease
     Dosage: 40 MG, DAILY
     Route: 048
     Dates: start: 201305
  13. MAGNESIUM [Concomitant]
     Active Substance: MAGNESIUM
     Indication: Hypomagnesaemia
     Dosage: 1 DF, DAILY
     Route: 048
     Dates: start: 201808
  14. MAGNESIUM [Concomitant]
     Active Substance: MAGNESIUM
     Dosage: 2 DF, SINGLE
     Dates: start: 20221212, end: 20221212
  15. CALCIUM\CHOLECALCIFEROL [Concomitant]
     Active Substance: CALCIUM\CHOLECALCIFEROL
     Dosage: 1000 IU, DAILY
     Route: 048
     Dates: start: 201808
  16. PANADOL [Concomitant]
     Active Substance: ACETAMINOPHEN
     Indication: Myalgia
     Dosage: 1330 MG, 3X/DAY
     Route: 048
     Dates: start: 20221215
  17. PANADOL [Concomitant]
     Active Substance: ACETAMINOPHEN
     Indication: Arthralgia
  18. PREDNISOLONE [Concomitant]
     Active Substance: PREDNISOLONE
     Indication: Myalgia
     Dosage: 25 MG, 1X/DAY MORNING
     Route: 048
     Dates: start: 20221216
  19. PREDNISOLONE [Concomitant]
     Active Substance: PREDNISOLONE
     Indication: Arthralgia
     Dosage: 50 MG, 1X/DAY MORNING
     Route: 048
     Dates: start: 20221219

REACTIONS (1)
  - Pneumothorax [Recovering/Resolving]

NARRATIVE: CASE EVENT DATE: 20221222
